FAERS Safety Report 12728531 (Version 1)
Quarter: 2016Q3

REPORT INFORMATION
  Report Type: Spontaneous
  Country: US (occurrence: US)
  Receive Date: 20160907
  Receipt Date: 20160907
  Transmission Date: 20161109
  Serious: Yes (Hospitalization)
  Sender: FDA-Public Use
  Company Number: None

PATIENT
  Age: 46 Year
  Sex: Male
  Weight: 65.35 kg

DRUGS (2)
  1. 5-FLUOROURACIL (5-FU) [Suspect]
     Active Substance: FLUOROURACIL
     Dates: end: 20160628
  2. CISPLATIN. [Suspect]
     Active Substance: CISPLATIN
     Dates: end: 20160624

REACTIONS (5)
  - Klebsiella test positive [None]
  - Staphylococcus test positive [None]
  - Ear infection [None]
  - Candida test positive [None]
  - Otitis externa [None]

NARRATIVE: CASE EVENT DATE: 20160718
